FAERS Safety Report 5822674-0 (Version None)
Quarter: 2008Q3

REPORT INFORMATION
  Report Type: 
  Country: None (occurrence: None)
  Receive Date: 20080714
  Receipt Date: 20071210
  Transmission Date: 20090109
  Serious: Yes (Hospitalization)
  Sender: FDA-Public Use
  Company Number: 535889

PATIENT
  Sex: Female

DRUGS (4)
  1. BONIVA [Suspect]
     Indication: OSTEOPOROSIS
     Dosage: 150 MG ORAL
     Route: 048
     Dates: start: 20071209
  2. FOSAMAX [Suspect]
     Indication: OSTEOPOROSIS
  3. FORTEO [Suspect]
     Indication: OSTEOPOROSIS
  4. PROTONIX [Concomitant]

REACTIONS (4)
  - CHOKING SENSATION [None]
  - EROSIVE OESOPHAGITIS [None]
  - ILL-DEFINED DISORDER [None]
  - MUSCLE SPASMS [None]
